FAERS Safety Report 4418123-X (Version None)
Quarter: 2004Q3

REPORT INFORMATION
  Report Type: 
  Country: None (occurrence: None)
  Receive Date: 20040809
  Receipt Date: 20040804
  Transmission Date: 20050211
  Serious: Yes (Death)
  Sender: FDA-Public Use
  Company Number: DE-JNJFOC-20040800881

PATIENT
  Age: 66 Year
  Sex: Male
  Weight: 70 kg

DRUGS (13)
  1. REOPRO [Suspect]
     Route: 042
     Dates: end: 20040718
  2. REOPRO [Suspect]
     Route: 042
     Dates: end: 20040718
  3. REOPRO [Suspect]
     Indication: ACUTE CORONARY SYNDROME
     Route: 042
     Dates: end: 20040718
  4. HEPARIN [Concomitant]
     Route: 041
     Dates: start: 20040718, end: 20040718
  5. HEPARIN [Concomitant]
     Indication: ACUTE CORONARY SYNDROME
     Route: 041
     Dates: start: 20040718, end: 20040718
  6. ASPIRIN [Concomitant]
     Indication: ACUTE CORONARY SYNDROME
     Route: 049
  7. CLOPIDOGREL [Concomitant]
     Indication: ACUTE CORONARY SYNDROME
     Route: 049
  8. SPIRONOLACTONE [Concomitant]
     Indication: CARDIAC FAILURE CONGESTIVE
     Route: 049
  9. ATORVASTATIN CALCIUM [Concomitant]
     Indication: MYOCARDIAL ISCHAEMIA
     Route: 049
  10. METOPROLOL [Concomitant]
     Indication: MYOCARDIAL ISCHAEMIA
     Route: 049
  11. NOVOMIX [Concomitant]
     Dosage: 16 + 8 UNITS
  12. PRUSEMIDE [Concomitant]
     Indication: CARDIAC FAILURE CONGESTIVE
     Route: 049
  13. PERINDOPRIL [Concomitant]
     Indication: MYOCARDIAL ISCHAEMIA
     Route: 049

REACTIONS (3)
  - HAEMATURIA [None]
  - HAEMOPTYSIS [None]
  - THROMBOCYTOPENIA [None]
